FAERS Safety Report 10925864 (Version 1)
Quarter: 2015Q1

REPORT INFORMATION
  Report Type: Spontaneous
  Country: IN (occurrence: IN)
  Receive Date: 20150318
  Receipt Date: 20150318
  Transmission Date: 20150721
  Serious: Yes (Hospitalization)
  Sender: FDA-Public Use
  Company Number: IN-ASTRAZENECA-2015SE23127

PATIENT
  Age: 70 Year
  Sex: Female

DRUGS (5)
  1. DYTOR PLUS [Concomitant]
     Route: 048
     Dates: start: 20140809, end: 20150305
  2. BRILINTA [Suspect]
     Active Substance: TICAGRELOR
     Indication: ACUTE CORONARY SYNDROME
     Route: 048
     Dates: start: 20140809, end: 20150305
  3. TELMISARTAN. [Concomitant]
     Active Substance: TELMISARTAN
     Indication: ACUTE CORONARY SYNDROME
     Route: 048
     Dates: start: 20140809, end: 20150305
  4. ROSUVASTATIN [Concomitant]
     Active Substance: ROSUVASTATIN
     Indication: ACUTE CORONARY SYNDROME
     Route: 048
     Dates: start: 20140809, end: 20150305
  5. ASPIRIN. [Concomitant]
     Active Substance: ASPIRIN
     Indication: ACUTE CORONARY SYNDROME
     Route: 048
     Dates: start: 20140809, end: 20150305

REACTIONS (2)
  - Gastrointestinal ulcer [Unknown]
  - Gastrointestinal haemorrhage [Unknown]

NARRATIVE: CASE EVENT DATE: 20150305
